FAERS Safety Report 24150842 (Version 3)
Quarter: 2025Q1

REPORT INFORMATION
  Report Type: Spontaneous
  Country: US (occurrence: US)
  Receive Date: 20240730
  Receipt Date: 20250312
  Transmission Date: 20250409
  Serious: No
  Sender: GLAXOSMITHKLINE
  Company Number: US-GSKCCFUS-Case-02061798_AE-114098

PATIENT
  Age: 71 Year
  Sex: Male

DRUGS (2)
  1. NUCALA [Suspect]
     Active Substance: MEPOLIZUMAB
     Indication: Asthma
     Route: 058
     Dates: start: 202409
  2. LEVOXYL [Concomitant]
     Active Substance: LEVOTHYROXINE SODIUM
     Indication: Product used for unknown indication

REACTIONS (6)
  - Contusion [Not Recovered/Not Resolved]
  - Essential tremor [Not Recovered/Not Resolved]
  - Condition aggravated [Unknown]
  - Poor quality sleep [Not Recovered/Not Resolved]
  - Product dose omission issue [Unknown]
  - Missing dose response relationship [Unknown]

NARRATIVE: CASE EVENT DATE: 20250101
